FAERS Safety Report 23728109 (Version 1)
Quarter: 2024Q2

REPORT INFORMATION
  Report Type: Spontaneous
  Country: US (occurrence: US)
  Receive Date: 20240410
  Receipt Date: 20240410
  Transmission Date: 20240715
  Serious: Yes (Other)
  Sender: FDA-Public Use
  Company Number: US-ALEMBIC PHARMACUETICALS LIMITED-2024SCAL000387

PATIENT

DRUGS (1)
  1. MESALAMINE [Suspect]
     Active Substance: MESALAMINE
     Indication: Crohn^s disease
     Dosage: UNK
     Route: 065

REACTIONS (9)
  - Myocardial injury [Recovering/Resolving]
  - Eosinophilic myocarditis [Recovering/Resolving]
  - Myocardial oedema [Recovering/Resolving]
  - Cardiovascular insufficiency [Recovering/Resolving]
  - Electrocardiogram ST segment elevation [Recovering/Resolving]
  - Chest pain [Recovering/Resolving]
  - Pyrexia [Recovering/Resolving]
  - Asthenia [Recovering/Resolving]
  - Leukocytosis [Recovering/Resolving]
